FAERS Safety Report 23492984 (Version 3)
Quarter: 2024Q2

REPORT INFORMATION
  Report Type: Spontaneous
  Country: DE (occurrence: DE)
  Receive Date: 20240207
  Receipt Date: 20240430
  Transmission Date: 20240715
  Serious: Yes (Other)
  Sender: FDA-Public Use
  Company Number: DE-TEVA-VS-3152159

PATIENT
  Age: 3 Year
  Sex: Male

DRUGS (1)
  1. AMOXICILLIN [Suspect]
     Active Substance: AMOXICILLIN
     Indication: Bacterial infection
     Dosage: DOSAGE: 50 MG/ML MAH-RATIOPHARM, RATIOPHARM 250 MG/5 ML TS
     Route: 065
     Dates: start: 20240125, end: 20240130

REACTIONS (2)
  - Swelling face [Recovered/Resolved]
  - Pustule [Recovered/Resolved]

NARRATIVE: CASE EVENT DATE: 20240130
